FAERS Safety Report 5960800-3 (Version None)
Quarter: 2008Q4

REPORT INFORMATION
  Report Type: 
  Country: None (occurrence: None)
  Receive Date: 20081120
  Receipt Date: 20081112
  Transmission Date: 20090506
  Serious: Yes (Hospitalization)
  Sender: FDA-Public Use
  Company Number: MY-RANBAXY-2008RR-18218

PATIENT
  Age: 17 Year
  Sex: Male

DRUGS (1)
  1. ISOTRETINOIN [Suspect]
     Indication: ACNE
     Dosage: 0.5 MG/KG, QD
     Dates: start: 19921101

REACTIONS (1)
  - PYODERMA GANGRENOSUM [None]
